FAERS Safety Report 7376599-2 (Version None)
Quarter: 2011Q1

REPORT INFORMATION
  Report Type: 
  Country: None (occurrence: None)
  Receive Date: 20110325
  Receipt Date: 20110314
  Transmission Date: 20110831
  Serious: Yes (Hospitalization)
  Sender: FDA-Public Use
  Company Number: US-CELGENEUS-163-21880-11010174

PATIENT
  Sex: Male

DRUGS (18)
  1. FENTANYL [Concomitant]
     Route: 062
     Dates: start: 20101215
  2. GABAPENTIN [Concomitant]
     Route: 048
     Dates: start: 20101215
  3. SPIRONOLACTONE [Concomitant]
     Route: 048
     Dates: start: 20100910
  4. TAMSULOSIN HCL [Concomitant]
     Route: 048
     Dates: start: 20101227
  5. NEXIUM [Concomitant]
     Route: 048
     Dates: start: 20100830
  6. REVLIMID [Suspect]
     Indication: MULTIPLE MYELOMA
     Dosage: 25 MILLIGRAM
     Route: 048
     Dates: start: 20101122, end: 20101206
  7. GENERLAC [Concomitant]
     Route: 065
     Dates: start: 20101105
  8. DEXAMETHASONE [Concomitant]
     Route: 048
     Dates: start: 20101105
  9. LEXAPRO [Concomitant]
     Route: 048
     Dates: start: 20100929
  10. TEMAZEPAM [Concomitant]
     Route: 048
     Dates: start: 20101227
  11. FENTANYL [Concomitant]
     Route: 062
     Dates: start: 20101215
  12. LIDODERM [Concomitant]
     Route: 062
     Dates: start: 20101215
  13. FUROSEMIDE [Concomitant]
     Route: 048
     Dates: start: 20100910
  14. GABAPENTIN [Concomitant]
     Route: 048
     Dates: start: 20101013
  15. XIFAXAN [Concomitant]
     Route: 048
     Dates: start: 20101216
  16. OXYCODONE [Concomitant]
     Route: 048
     Dates: start: 20101215
  17. CELEBREX [Concomitant]
     Route: 048
     Dates: start: 20101215
  18. CALCITONIN [Concomitant]
     Route: 045
     Dates: start: 20101215

REACTIONS (3)
  - PAIN [None]
  - FAILURE TO THRIVE [None]
  - CONFUSIONAL STATE [None]
